FAERS Safety Report 6293638-0 (Version None)
Quarter: 2009Q3

REPORT INFORMATION
  Report Type: 
  Country: None (occurrence: None)
  Receive Date: 20090729
  Receipt Date: 20090717
  Transmission Date: 20100115
  Serious: Yes (Other)
  Sender: FDA-Public Use
  Company Number: DSA_34065_2009

PATIENT
  Age: 67 Year
  Sex: Female

DRUGS (4)
  1. SLOZEM (SLOZEM - DILTIAZEM HYDROCHLORIDE) (NOT SPECIFIED) [Suspect]
     Indication: CARDIAC DISORDER
     Dosage: (120 MG QD), (DF)
     Dates: start: 20090508
  2. LIPITOR [Suspect]
     Indication: DRUG USE FOR UNKNOWN INDICATION
     Dosage: (10 MG QD  ORAL), (15 MG QD)
     Route: 048
     Dates: start: 20050606, end: 20090428
  3. LIPITOR [Suspect]
     Indication: DRUG USE FOR UNKNOWN INDICATION
     Dosage: (10 MG QD  ORAL), (15 MG QD)
     Route: 048
     Dates: start: 20070711
  4. LANSOPRAZOLE [Concomitant]

REACTIONS (3)
  - BLOOD CREATINE PHOSPHOKINASE INCREASED [None]
  - CARDIAC ENZYMES INCREASED [None]
  - MYALGIA [None]
